FAERS Safety Report 8805035 (Version 3)
Quarter: 2012Q4

REPORT INFORMATION
  Report Type: Report from Study
  Country: AT (occurrence: AT)
  Receive Date: 20120924
  Receipt Date: 20121012
  Transmission Date: 20130627
  Serious: Yes (Hospitalization)
  Sender: FDA-Public Use
  Company Number: AT-ROCHE-1124776

PATIENT
  Age: 52 Year
  Sex: Male
  Weight: 94 kg

DRUGS (5)
  1. ZELBORAF [Suspect]
     Indication: MALIGNANT MELANOMA
     Dosage: last dose prior to SAE 02/May/2012
     Route: 048
     Dates: start: 20120405, end: 20120503
  2. ZELBORAF [Suspect]
     Route: 048
     Dates: start: 20120526
  3. COMPETACT [Concomitant]
     Dosage: 15 MG/850 MG ONE TABLET
     Route: 065
     Dates: start: 2008, end: 20120725
  4. PANTOLOC [Concomitant]
     Dosage: ONE TABLET PER DAY
     Route: 065
     Dates: start: 20111011
  5. ACTRAPID [Concomitant]
     Dosage: 8 IU/ML
     Route: 065
     Dates: start: 20120513

REACTIONS (1)
  - Pleural effusion [Recovered/Resolved]
